FAERS Safety Report 8393942-6 (Version None)
Quarter: 2012Q2

REPORT INFORMATION
  Report Type: 
  Country: None (occurrence: None)
  Receive Date: 20120517
  Receipt Date: 20120508
  Transmission Date: 20120825
  Serious: Yes (Hospitalization, Disabling)
  Sender: FDA-Public Use
  Company Number: 2011SP033361

PATIENT
  Age: 24 Year
  Sex: Female
  Weight: 130.1823 kg

DRUGS (5)
  1. NUVARING [Suspect]
     Indication: CONTRACEPTION
     Dates: start: 20080919, end: 20090723
  2. PHENAZOPYRIDINE HCL TAB [Suspect]
     Indication: PRODUCT USED FOR UNKNOWN INDICATION
  3. NITROFURANTOIN [Suspect]
     Indication: URINARY TRACT INFECTION
     Dates: start: 20090701, end: 20090701
  4. MEDROL [Suspect]
     Indication: URINARY TRACT INFECTION
     Dates: start: 20090701
  5. ALBUTEROL [Concomitant]

REACTIONS (27)
  - MUSCLE SPASMS [None]
  - GESTATIONAL DIABETES [None]
  - PULMONARY EMBOLISM [None]
  - MULTIPLE INJURIES [None]
  - HAEMOGLOBIN DECREASED [None]
  - LEUKOCYTOSIS [None]
  - HYPERTENSION [None]
  - NERVE COMPRESSION [None]
  - ABORTION SPONTANEOUS [None]
  - PRE-ECLAMPSIA [None]
  - RASH [None]
  - URTICARIA [None]
  - MATERNAL EXPOSURE BEFORE PREGNANCY [None]
  - DEEP VEIN THROMBOSIS [None]
  - THROMBOSIS [None]
  - LYMPHADENOPATHY [None]
  - LOSS OF CONSCIOUSNESS [None]
  - BACTERIAL TEST POSITIVE [None]
  - TREATMENT NONCOMPLIANCE [None]
  - ASTHMA [None]
  - PREGNANCY [None]
  - ARTHRALGIA [None]
  - HYPOKALAEMIA [None]
  - URINARY TRACT INFECTION [None]
  - HYPERCOAGULATION [None]
  - INTERNATIONAL NORMALISED RATIO INCREASED [None]
  - AMENORRHOEA [None]
